FAERS Safety Report 7519369-4 (Version None)
Quarter: 2011Q2

REPORT INFORMATION
  Report Type: 
  Country: None (occurrence: None)
  Receive Date: 20110602
  Receipt Date: 20110519
  Transmission Date: 20111010
  Serious: Yes (Other)
  Sender: FDA-Public Use
  Company Number: PHHY2011US43780

PATIENT
  Age: 85 Year
  Sex: Female

DRUGS (7)
  1. QUETIAPINE [Suspect]
     Dosage: 25 MG, QD
  2. PIMOZIDE [Suspect]
     Indication: SOMATIC DELUSION
     Dosage: 1 MG, DAILY
  3. RISPERIDONE [Suspect]
     Dosage: 0.5 MG, QD
  4. DIPHENHYDRAMINE HCL [Suspect]
     Indication: SOMATIC DELUSION
     Dosage: 25 MG, DAILY
  5. RISPERIDONE [Suspect]
     Dosage: 1 MG, QD
  6. CROTAMITON [Suspect]
     Indication: SOMATIC DELUSION
  7. QUETIAPINE [Suspect]
     Dosage: 100 MG, QD

REACTIONS (3)
  - DYSKINESIA [None]
  - TARDIVE DYSKINESIA [None]
  - FATIGUE [None]
